FAERS Safety Report 17774345 (Version 2)
Quarter: 2025Q2

REPORT INFORMATION
  Report Type: Report from Study
  Country: FR (occurrence: FR)
  Receive Date: 20200513
  Receipt Date: 20250403
  Transmission Date: 20250717
  Serious: Yes (Hospitalization)
  Sender: BOEHRINGER INGELHEIM
  Company Number: FR-MYLANLABS-2020M1042149

PATIENT

DRUGS (6)
  1. VIRAMUNE [Suspect]
     Active Substance: NEVIRAPINE
     Indication: HIV infection
  2. VIRAMUNE [Suspect]
     Active Substance: NEVIRAPINE
  3. STAVUDINE [Suspect]
     Active Substance: STAVUDINE
     Indication: HIV infection
  4. STAVUDINE [Suspect]
     Active Substance: STAVUDINE
  5. DIDANOSINE [Suspect]
     Active Substance: DIDANOSINE
     Indication: HIV infection
  6. DIDANOSINE [Suspect]
     Active Substance: DIDANOSINE

REACTIONS (3)
  - Immune reconstitution inflammatory syndrome [Recovering/Resolving]
  - Unmasking of previously unidentified disease [Recovering/Resolving]
  - Histoplasmosis [Recovering/Resolving]
